FAERS Safety Report 9549370 (Version 2)
Quarter: 2013Q3

REPORT INFORMATION
  Report Type: Spontaneous
  Country: FR (occurrence: FR)
  Receive Date: 20130924
  Receipt Date: 20130924
  Transmission Date: 20140515
  Serious: Yes (Death, Other)
  Sender: FDA-Public Use
  Company Number: FR-TAKEDA-THQ2013A06085

PATIENT
  Sex: 0

DRUGS (15)
  1. ATACAND [Suspect]
     Dosage: 16 MG, QD
     Route: 048
  2. ATACAND [Suspect]
     Dosage: 16 MG, QD
     Route: 048
  3. ALPRAZOLAM [Suspect]
     Dosage: 0.5 MG, QD
     Route: 048
  4. ALPRAZOLAM [Suspect]
     Route: 048
  5. XARELTO [Suspect]
     Dosage: 15 MG, UNK
     Route: 048
     Dates: start: 20130717, end: 20130724
  6. CIPROFLOXACINE ARROW [Suspect]
     Indication: URINARY TRACT INFECTION
     Route: 048
     Dates: start: 20130714, end: 20130724
  7. PRAVASTATINE ARROW [Suspect]
     Route: 048
  8. PRAVASTATINE ARROW [Suspect]
     Route: 048
  9. IMOVANE [Suspect]
     Route: 048
  10. IMOVANE [Suspect]
     Route: 048
  11. CARDENSIEL [Suspect]
     Route: 048
     Dates: start: 20130717
  12. LASILIX RETARD [Suspect]
     Route: 048
     Dates: end: 20130724
  13. AMIODARONE ARROW [Suspect]
     Route: 048
     Dates: start: 20130714
  14. FRAGMINE [Suspect]
     Route: 058
     Dates: start: 20130714, end: 20130717
  15. ALPRAZOLAM ARROW [Suspect]
     Route: 048

REACTIONS (4)
  - Pulmonary embolism [Fatal]
  - Glomerular filtration rate decreased [Not Recovered/Not Resolved]
  - Blood creatinine increased [Not Recovered/Not Resolved]
  - Thrombocytopenia [Unknown]
